FAERS Safety Report 5719717-1 (Version None)
Quarter: 2008Q2

REPORT INFORMATION
  Report Type: 
  Country: None (occurrence: None)
  Receive Date: 20080428
  Receipt Date: 20070515
  Transmission Date: 20081010
  Serious: Yes (Other)
  Sender: FDA-Public Use
  Company Number: A0649069A

PATIENT
  Age: 28 Year
  Sex: Female
  Weight: 118 kg

DRUGS (1)
  1. ZOFRAN [Suspect]
     Dosage: 4MG SINGLE DOSE
     Route: 042
     Dates: start: 20070427, end: 20070427

REACTIONS (3)
  - BLEPHAROSPASM [None]
  - EYE ROLLING [None]
  - OCULOGYRIC CRISIS [None]
